FAERS Safety Report 6928347-5 (Version None)
Quarter: 2010Q3

REPORT INFORMATION
  Report Type: 
  Country: None (occurrence: None)
  Receive Date: 20100817
  Receipt Date: 20100806
  Transmission Date: 20110219
  Serious: Yes (Life-Threatening, Hospitalization, Other)
  Sender: FDA-Public Use
  Company Number: US-BAYER-201035618GPV

PATIENT
  Age: 79 Year
  Sex: Female

DRUGS (21)
  1. SOTALOL HCL [Suspect]
     Indication: ATRIAL FIBRILLATION
     Dosage: UNIT DOSE: 40 MG
  2. OSELTAMIVIR [Suspect]
     Indication: H1N1 INFLUENZA
     Dosage: UNIT DOSE: 75 MG
  3. ASPIRIN [Concomitant]
  4. WARFARIN [Concomitant]
  5. WARFARIN [Concomitant]
  6. LISINOPRIL [Concomitant]
  7. FUROSEMIDE [Concomitant]
  8. POTASSIUM CHLORIDE [Concomitant]
  9. CALCIUM [Concomitant]
  10. LECITHIN [Concomitant]
  11. GLUCOSAMINE [Concomitant]
  12. MULTI-VITAMIN [Concomitant]
  13. CEFTRIAXONE [Concomitant]
     Dosage: EVERY 24 HOURS , HOSPITAL DAY 3
  14. VANCOMYCIN [Concomitant]
     Dosage: EVERY 24 HOURS, HOSPITAL DAYS 4-6
  15. CEFEPIME [Concomitant]
     Dosage: AS USED: 1 G
  16. DOXYCYCLINE [Concomitant]
     Dosage: AS USED: 100 MG
  17. FAMOTIDINE [Concomitant]
     Dosage: TOTAL DAILY DOSE: 40 MG  UNIT DOSE: 20 MG
  18. FUROSEMIDE [Concomitant]
     Dosage: VARIOUS DOSES INTERMITTENTLY
  19. ONDANSETRON [Concomitant]
     Dosage: SEVEN DOSES OVER DAYS 2-9
     Route: 042
  20. MAGNESIUM [Concomitant]
  21. POTASSIUM [Concomitant]

REACTIONS (2)
  - ELECTROCARDIOGRAM QT PROLONGED [None]
  - TORSADE DE POINTES [None]
